FAERS Safety Report 8785962 (Version 2)
Quarter: 2015Q3

REPORT INFORMATION
  Report Type: Report from Study
  Country: US (occurrence: US)
  Receive Date: 20120914
  Receipt Date: 20150701
  Transmission Date: 20151125
  Serious: Yes (Death)
  Sender: FDA-Public Use
  Company Number: US-ROCHE-1127909

PATIENT
  Sex: Female

DRUGS (8)
  1. GCSF OR GMCSF [Concomitant]
  2. DECADRON [Concomitant]
     Active Substance: DEXAMETHASONE
     Dosage: DOSE: 40 UNIT NOT REPORTED
     Route: 065
  3. AVASTIN [Suspect]
     Active Substance: BEVACIZUMAB
     Indication: BRAIN NEOPLASM MALIGNANT
     Route: 065
     Dates: start: 200712
  4. AVASTIN [Suspect]
     Active Substance: BEVACIZUMAB
     Route: 065
  5. BENADRYL [Concomitant]
     Active Substance: DIPHENHYDRAMINE HYDROCHLORIDE
     Dosage: DOSE: 10 UNIT NOT REPORTED
     Route: 042
  6. TYLENOL [Concomitant]
     Active Substance: ACETAMINOPHEN
     Dosage: 2 TABLETS
     Route: 065
  7. ALOXI [Concomitant]
     Active Substance: PALONOSETRON HYDROCHLORIDE
     Dosage: DOSE: 0.25 UNIT NOT REPORTED
     Route: 065
  8. CPT-11 [Concomitant]
     Active Substance: IRINOTECAN
     Dosage: DOSE: 225 UNIT NOT REPORTED
     Route: 065

REACTIONS (2)
  - Death [Fatal]
  - Off label use [Unknown]
